FAERS Safety Report 6369981-3 (Version None)
Quarter: 2009Q3

REPORT INFORMATION
  Report Type: 
  Country: None (occurrence: None)
  Receive Date: 20090923
  Receipt Date: 20070601
  Transmission Date: 20100115
  Serious: No
  Sender: FDA-Public Use
  Company Number: US-ASTRAZENECA-2006UW03300

PATIENT
  Age: 17044 Day
  Sex: Female
  Weight: 114.8 kg

DRUGS (15)
  1. SEROQUEL [Suspect]
     Indication: PSYCHOTIC DISORDER
     Route: 048
     Dates: start: 19990801, end: 20040101
  2. SEROQUEL [Suspect]
     Indication: SCHIZOPHRENIA
     Route: 048
     Dates: start: 19990801, end: 20040101
  3. SEROQUEL [Suspect]
     Dosage: 150 - 600 MG AT NIGHT
     Route: 048
     Dates: start: 20001221, end: 20060504
  4. SEROQUEL [Suspect]
     Dosage: 150 - 600 MG AT NIGHT
     Route: 048
     Dates: start: 20001221, end: 20060504
  5. RISPERDAL [Suspect]
     Dates: start: 19970101, end: 20050101
  6. RISPERDAL [Suspect]
     Dosage: 1 - 3 MG AT BEDTIME
     Route: 048
     Dates: start: 20030911
  7. GEODON [Concomitant]
     Dates: start: 20040101
  8. THORAZINE [Concomitant]
     Dates: start: 19730101, end: 19740101
  9. XANAX [Concomitant]
     Dates: start: 19950101, end: 20060101
  10. XANAX [Concomitant]
     Dosage: 2 - 8 MG DAILY
     Route: 048
     Dates: start: 20001221
  11. PROZAC [Concomitant]
     Indication: DEPRESSION
     Dates: start: 19950101, end: 20060101
  12. PROZAC [Concomitant]
     Route: 048
     Dates: start: 20001221
  13. DEPAKOTE [Concomitant]
     Indication: BIPOLAR DISORDER
     Dates: start: 19950101
  14. METFORMIN HCL [Concomitant]
     Indication: DIABETES MELLITUS
     Dates: start: 20040101
  15. NEURONTIN [Concomitant]
     Route: 048
     Dates: start: 20001221

REACTIONS (4)
  - DIABETES MELLITUS [None]
  - METABOLIC SYNDROME [None]
  - TYPE 2 DIABETES MELLITUS [None]
  - WEIGHT INCREASED [None]
